FAERS Safety Report 13419648 (Version 1)
Quarter: 2017Q2

REPORT INFORMATION
  Report Type: Spontaneous
  Country: JP (occurrence: JP)
  Receive Date: 20170407
  Receipt Date: 20170407
  Transmission Date: 20170830
  Serious: No
  Sender: FDA-Public Use
  Company Number: JP-LUPIN PHARMACEUTICALS INC.-2017-00571

PATIENT
  Age: 70 Year
  Sex: Male

DRUGS (11)
  1. OXYCODONE [Suspect]
     Active Substance: OXYCODONE
     Indication: PRODUCT USED FOR UNKNOWN INDICATION
     Dosage: 10 MILLIGRAM
     Route: 065
  2. OXALIPLATIN. [Concomitant]
     Active Substance: OXALIPLATIN
     Dosage: UNK UNK,UNK,UNKNOWN
     Route: 065
  3. TRAMACET [Concomitant]
     Active Substance: ACETAMINOPHEN\TRAMADOL
     Indication: PRODUCT USED FOR UNKNOWN INDICATION
     Dosage: 3 TABLETS
     Route: 065
  4. BEVACIZUMAB [Concomitant]
     Active Substance: BEVACIZUMAB
     Indication: COLON CANCER STAGE IV
     Dosage: UNK UNK,UNK,UNKNOWN
     Route: 065
  5. PREGABALIN. [Suspect]
     Active Substance: PREGABALIN
     Dosage: 300 MG
     Route: 065
  6. TS-1 [Concomitant]
     Active Substance: GIMERACIL\OTERACIL\TEGAFUR
     Indication: COLON CANCER STAGE IV
     Dosage: UNK UNK,UNK,UNKNOWN
     Route: 065
  7. PREGABALIN. [Suspect]
     Active Substance: PREGABALIN
     Indication: PRODUCT USED FOR UNKNOWN INDICATION
     Dosage: 75 MG,UNK,UNKNOWN
     Route: 065
  8. OXALIPLATIN. [Concomitant]
     Active Substance: OXALIPLATIN
     Indication: COLON CANCER STAGE IV
     Dosage: UNK UNK,UNK,UNKNOWN
     Route: 065
  9. DULOXETINE. [Suspect]
     Active Substance: DULOXETINE
     Indication: PRODUCT USED FOR UNKNOWN INDICATION
     Dosage: 20 MG,UNK,UNKNOWN
     Route: 065
  10. TEGAFUR-GIMERACIL-OTERACIL POTASSIUM [Concomitant]
     Active Substance: GIMERACIL\OTERACIL\TEGAFUR
     Indication: COLON CANCER STAGE IV
     Dosage: UNK UNK,UNK,UNKNOWN
     Route: 065
  11. PREGABALIN. [Suspect]
     Active Substance: PREGABALIN
     Dosage: 150 MG
     Route: 065

REACTIONS (3)
  - Pain [Unknown]
  - Hypoaesthesia [Unknown]
  - Somnolence [Recovered/Resolved]
